FAERS Safety Report 15492314 (Version 3)
Quarter: 2019Q2

REPORT INFORMATION
  Report Type: Spontaneous
  Country: ES (occurrence: ES)
  Receive Date: 20181012
  Receipt Date: 20190405
  Transmission Date: 20190711
  Serious: Yes (Life-Threatening, Other)
  Sender: FDA-Public Use
  Company Number: ES-SUN PHARMACEUTICAL INDUSTRIES LTD-2018R1-169537

PATIENT
  Age: 8 Year
  Sex: Male

DRUGS (5)
  1. OMEPRAZOLE. [Suspect]
     Active Substance: OMEPRAZOLE
     Indication: INTUSSUSCEPTION
     Dosage: 20 MG, DAILY
     Route: 065
  2. SODIUM CROMOGLICATE [Concomitant]
     Active Substance: CROMOLYN SODIUM
     Indication: MASTOCYTOSIS
     Dosage: 100 MG/8H
     Route: 048
  3. FLUNARIZINE [Concomitant]
     Active Substance: FLUNARIZINE
     Indication: MIGRAINE
     Dosage: 5 MILLIGRAM, DAILY
     Route: 065
  4. OMEPRAZOLE. [Suspect]
     Active Substance: OMEPRAZOLE
     Indication: MASTOCYTOSIS
     Dosage: 40 MG, DAILY
     Route: 065
  5. CETIRIZINE [Concomitant]
     Active Substance: CETIRIZINE HYDROCHLORIDE
     Indication: MASTOCYTOSIS
     Dosage: 5 MG, DAILY
     Route: 065

REACTIONS (4)
  - Hypertrichosis [Recovered/Resolved]
  - Product use in unapproved indication [Unknown]
  - Migraine [Unknown]
  - Intussusception [Unknown]
